FAERS Safety Report 18422058 (Version 1)
Quarter: 2020Q4

REPORT INFORMATION
  Report Type: Spontaneous
  Country: IN (occurrence: IN)
  Receive Date: 20201023
  Receipt Date: 20201023
  Transmission Date: 20210114
  Serious: Yes (Hospitalization, Other)
  Sender: FDA-Public Use
  Company Number: IN-PFIZER INC-2020408097

PATIENT
  Age: 51 Year
  Sex: Female
  Weight: 55.1 kg

DRUGS (22)
  1. FOSAPREPITANT [Suspect]
     Active Substance: FOSAPREPITANT
     Dosage: UNK, CYCLIC (C1, D1 CYCLE)
     Dates: start: 20200720, end: 20200721
  2. CISPLATIN. [Suspect]
     Active Substance: CISPLATIN
     Dosage: 75 MG/M2 (OVER D1/D2) (~120 MG) 3 WEEKLY X 6 CYCLES WITH INTERIM EVALUATION
  3. BEVETEX [Suspect]
     Active Substance: PACLITAXEL
     Dosage: UNK, CYCLIC (C5 CYCLE)
     Dates: start: 20200626, end: 20200627
  4. FOSAPREPITANT [Suspect]
     Active Substance: FOSAPREPITANT
     Indication: NON-SMALL CELL LUNG CANCER METASTATIC
     Dosage: UNK, CYCLIC (C2, D1 CYCLE)
     Dates: start: 20200423
  5. ZOLEDRONATE [Suspect]
     Active Substance: ZOLEDRONIC ACID
     Dosage: 4 MG, CYCLIC
  6. PEG GRAFEEL [Suspect]
     Active Substance: PEGFILGRASTIM
     Indication: NON-SMALL CELL LUNG CANCER METASTATIC
     Dosage: 6 MG S/C D2 X 3 WEEKLY X 6 CYCLES
     Route: 058
  7. CARBOPLATIN. [Suspect]
     Active Substance: CARBOPLATIN
     Dosage: 450 MG (C2 D2)
     Dates: start: 20200424
  8. FILGRASTIM [Suspect]
     Active Substance: FILGRASTIM
     Indication: NON-SMALL CELL LUNG CANCER METASTATIC
     Dosage: 300 MG (C1 CYCLE)
     Route: 058
     Dates: start: 20200402
  9. CARBOPLATIN. [Suspect]
     Active Substance: CARBOPLATIN
     Indication: NON-SMALL CELL LUNG CANCER METASTATIC
     Dosage: 450 MG (C1 CYCLE)
     Dates: start: 20200401
  10. CARBOPLATIN. [Suspect]
     Active Substance: CARBOPLATIN
     Dosage: C4 CYCLE
     Dates: start: 20200605, end: 20200606
  11. FILGRASTIM [Suspect]
     Active Substance: FILGRASTIM
     Dosage: 300 MG (C3 CYCLE)
     Route: 058
     Dates: start: 20200517
  12. PEMETREXED. [Suspect]
     Active Substance: PEMETREXED
     Indication: NON-SMALL CELL LUNG CANCER METASTATIC
     Dosage: C1 D1 CYCLE
     Dates: start: 20200720, end: 20200721
  13. BEVETEX [Suspect]
     Active Substance: PACLITAXEL
     Indication: NON-SMALL CELL LUNG CANCER METASTATIC
     Dosage: UNK, CYCLIC (C2 D1 CYCLE)
     Dates: start: 20200423
  14. ZOLEDRONATE [Suspect]
     Active Substance: ZOLEDRONIC ACID
     Indication: NON-SMALL CELL LUNG CANCER METASTATIC
     Dosage: 4 MG (C1 D1 CYCLE)
     Dates: start: 20200720, end: 20200721
  15. BEVETEX [Suspect]
     Active Substance: PACLITAXEL
     Dosage: UNK, CYCLIC (C4 CYCLE)
     Dates: start: 20200605, end: 20200606
  16. FOSAPREPITANT [Suspect]
     Active Substance: FOSAPREPITANT
     Dosage: 150 MG, CYCLIC
  17. PEMETREXED. [Suspect]
     Active Substance: PEMETREXED
     Dosage: 500 MG/M2 (~700MG)
  18. PEG GRAFEEL [Suspect]
     Active Substance: PEGFILGRASTIM
     Dosage: 6 MG S/C D3
     Route: 058
  19. CARBOPLATIN. [Suspect]
     Active Substance: CARBOPLATIN
     Dosage: C5 CYCLE
     Dates: start: 20200626, end: 20200627
  20. BEVETEX [Suspect]
     Active Substance: PACLITAXEL
     Dosage: UNK, CYCLIC (C3 CYCLE)
     Dates: start: 20200515, end: 20200516
  21. CARBOPLATIN. [Suspect]
     Active Substance: CARBOPLATIN
     Dosage: C3 CYCLE
     Dates: start: 20200515, end: 20200516
  22. CISPLATIN. [Suspect]
     Active Substance: CISPLATIN
     Indication: NON-SMALL CELL LUNG CANCER METASTATIC
     Dosage: UNK, CYCLIC (C1 D1 CYCLE, D1-D2)
     Dates: start: 20200720, end: 20200721

REACTIONS (14)
  - Neoplasm progression [Unknown]
  - Blood calcium decreased [Unknown]
  - Blood uric acid increased [Unknown]
  - Asthenia [Unknown]
  - Product use in unapproved indication [Unknown]
  - Off label use [Unknown]
  - Diarrhoea [Unknown]
  - Pericardial effusion [Unknown]
  - White blood cell count increased [Unknown]
  - Blood urea increased [Unknown]
  - Haemoglobin decreased [Unknown]
  - Nausea [Unknown]
  - Vomiting [Unknown]
  - Blood sodium decreased [Recovering/Resolving]

NARRATIVE: CASE EVENT DATE: 20200601
